FAERS Safety Report 9776550 (Version 2)
Quarter: 2013Q4

REPORT INFORMATION
  Report Type: Spontaneous
  Country: JP (occurrence: JP)
  Receive Date: 20131220
  Receipt Date: 20131230
  Transmission Date: 20140711
  Serious: Yes (Hospitalization)
  Sender: FDA-Public Use
  Company Number: JP-B.I. PHARMACEUTICALS,INC./RIDGEFIELD-2013-BI-43221GD

PATIENT
  Age: 72 Year
  Sex: Female

DRUGS (3)
  1. TELMISARTAN [Suspect]
     Indication: HYPERTENSION
     Dosage: 40 MG
  2. TELMISARTAN [Suspect]
     Dosage: 80 MG
  3. SPIRONOLACTONE [Suspect]

REACTIONS (3)
  - Renal impairment [Unknown]
  - Blood pressure inadequately controlled [Recovered/Resolved]
  - Renal artery stenosis [Unknown]
